FAERS Safety Report 4753500-9 (Version None)
Quarter: 2005Q3

REPORT INFORMATION
  Report Type: 
  Country: None (occurrence: None)
  Receive Date: 20050826
  Receipt Date: 20050819
  Transmission Date: 20060218
  Serious: Yes (Other)
  Sender: FDA-Public Use
  Company Number: 2004-08-0311

PATIENT
  Age: 61 Year
  Sex: Male

DRUGS (8)
  1. ECOTRIN [Suspect]
     Indication: DRUG USE FOR UNKNOWN INDICATION
     Dosage: 325MG PER DAY
     Route: 048
  2. HEPARIN [Suspect]
     Indication: DRUG USE FOR UNKNOWN INDICATION
     Dosage: 5000UNIT PER DAY
     Route: 042
     Dates: start: 20040805
  3. PLAVIX [Suspect]
     Indication: DRUG USE FOR UNKNOWN INDICATION
     Dosage: 75MG PER DAY
     Route: 048
  4. INTEGRILIN [Suspect]
     Indication: DRUG USE FOR UNKNOWN INDICATION
     Route: 042
     Dates: start: 20040805
  5. INSULIN [Concomitant]
     Route: 058
  6. EZETIMIBE [Concomitant]
     Dosage: 10MG PER DAY
     Route: 048
  7. ROSUVASTATIN [Concomitant]
     Dosage: 10MG PER DAY
     Route: 048
  8. LOPRESSOR [Concomitant]
     Dosage: 25MG TWICE PER DAY
     Route: 048

REACTIONS (5)
  - ANAPHYLACTIC REACTION [None]
  - HAEMORRHAGE [None]
  - HYPOTENSION [None]
  - THROMBOCYTOPENIA [None]
  - TREMOR [None]
